FAERS Safety Report 7789625-3 (Version None)
Quarter: 2011Q3

REPORT INFORMATION
  Report Type: 
  Country: None (occurrence: None)
  Receive Date: 20110930
  Receipt Date: 20110920
  Transmission Date: 20111222
  Serious: Yes (Hospitalization, Disabling, Other)
  Sender: FDA-Public Use
  Company Number: US-MERCK-1012USA01906

PATIENT
  Age: 62 Year
  Sex: Male
  Weight: 70 kg

DRUGS (3)
  1. FOSAMAX [Suspect]
     Indication: SPINAL COMPRESSION FRACTURE
     Route: 048
     Dates: start: 20040729, end: 20071029
  2. ALENDRONATE SODIUM [Suspect]
     Indication: SPINAL COMPRESSION FRACTURE
     Route: 048
     Dates: start: 20080528, end: 20090620
  3. GLUCOSAMINE [Concomitant]
     Route: 065
     Dates: start: 20010101, end: 20060101

REACTIONS (28)
  - CAROTID ARTERY STENOSIS [None]
  - SALMONELLOSIS [None]
  - RENAL ARTERY STENOSIS [None]
  - HYPOKALAEMIA [None]
  - VITAMIN D DEFICIENCY [None]
  - INTERMITTENT CLAUDICATION [None]
  - BONE DISORDER [None]
  - COLITIS [None]
  - HYPERCALCAEMIA [None]
  - MENISCUS LESION [None]
  - HYPONATRAEMIA [None]
  - FEMORAL ARTERIAL STENOSIS [None]
  - IMPAIRED HEALING [None]
  - FEMUR FRACTURE [None]
  - HYPOAESTHESIA [None]
  - PERIPHERAL ARTERIAL OCCLUSIVE DISEASE [None]
  - WEIGHT DECREASED [None]
  - HYPERCHOLESTEROLAEMIA [None]
  - GASTROENTERITIS VIRAL [None]
  - LUNG NEOPLASM [None]
  - ARTERIAL OCCLUSIVE DISEASE [None]
  - HYPERLIPIDAEMIA [None]
  - DYSLIPIDAEMIA [None]
  - ANAEMIA [None]
  - ELECTROLYTE DEPLETION [None]
  - OVERDOSE [None]
  - DEVICE FAILURE [None]
  - TOOTH DISORDER [None]
